FAERS Safety Report 7797487-3 (Version None)
Quarter: 2011Q4

REPORT INFORMATION
  Report Type: 
  Country: None (occurrence: None)
  Receive Date: 20111005
  Receipt Date: 20110921
  Transmission Date: 20120403
  Serious: Yes (Death)
  Sender: FDA-Public Use
  Company Number: DE-DEXPHARM-20111424

PATIENT
  Age: 35 Month
  Sex: Female

DRUGS (5)
  1. SODIUM CHLROIDE [Concomitant]
  2. CHLORHEXIDINE GLUCONATE [Suspect]
  3. ORAMORPH SR [Concomitant]
  4. VOLPLEX (BATCH: 01209) (GIVEN FOR HAEMODIALYSIS AND HYPOTENSION) [Suspect]
  5. MIDODRINE HYDROCHLORIDE [Concomitant]

REACTIONS (4)
  - ANAPHYLACTIC REACTION [None]
  - DYSGEUSIA [None]
  - RESUSCITATION [None]
  - DOCUMENTED HYPERSENSITIVITY TO ADMINISTERED DRUG [None]
